FAERS Safety Report 12456919 (Version 3)
Quarter: 2017Q2

REPORT INFORMATION
  Report Type: Spontaneous
  Country: PT (occurrence: PT)
  Receive Date: 20160610
  Receipt Date: 20170406
  Transmission Date: 20170830
  Serious: Yes (Other)
  Sender: FDA-Public Use
  Company Number: PT-PFIZER INC-2014261615

PATIENT
  Age: 35 Year
  Sex: Female

DRUGS (3)
  1. DESLORATADINE. [Concomitant]
     Active Substance: DESLORATADINE
     Indication: RHINITIS ALLERGIC
     Dosage: 5 MG, 1X/DAY
  2. IBUPROFEN. [Suspect]
     Active Substance: IBUPROFEN
     Indication: INFLUENZA LIKE ILLNESS
     Dosage: 400 MG, UNK
     Route: 048
     Dates: start: 2008
  3. OMEPRAZOLE. [Suspect]
     Active Substance: OMEPRAZOLE
     Indication: INFLUENZA LIKE ILLNESS
     Dosage: 20 MG, UNK
     Route: 048
     Dates: start: 2008

REACTIONS (5)
  - Type IV hypersensitivity reaction [Unknown]
  - Angioedema [Recovered/Resolved]
  - Generalised erythema [Recovered/Resolved]
  - Pruritus [Recovered/Resolved]
  - Drug hypersensitivity [Recovered/Resolved]

NARRATIVE: CASE EVENT DATE: 2008
